FAERS Safety Report 4936714-4 (Version None)
Quarter: 2006Q1

REPORT INFORMATION
  Report Type: 
  Country: None (occurrence: None)
  Receive Date: 20060302
  Receipt Date: 20060213
  Transmission Date: 20060701
  Serious: Yes (Other)
  Sender: FDA-Public Use
  Company Number: CZ200601003706

PATIENT
  Age: 1 Day

DRUGS (2)
  1. ZYPREXA [Suspect]
     Indication: OBSESSIVE-COMPULSIVE PERSONALITY DISORDER
     Dosage: 5 MG,DAILY (1/D), TRANSPLACENTAL
     Route: 064
     Dates: start: 20051111, end: 20060111
  2. ESCITALOPRAM OXALATE [Concomitant]

REACTIONS (13)
  - BRADYCARDIA NEONATAL [None]
  - BRADYPNOEA [None]
  - DRUG EXPOSURE DURING PREGNANCY [None]
  - EXTRAPYRAMIDAL DISORDER [None]
  - FOETAL DISTRESS SYNDROME [None]
  - FORCEPS DELIVERY [None]
  - HYPOTONIA NEONATAL [None]
  - HYPOVENTILATION NEONATAL [None]
  - MECONIUM IN AMNIOTIC FLUID [None]
  - NEONATAL DISORDER [None]
  - NEONATAL HYPOXIA [None]
  - SEDATION [None]
  - TREMOR NEONATAL [None]
